FAERS Safety Report 18425767 (Version 1)
Quarter: 2020Q4

REPORT INFORMATION
  Report Type: Report from Study
  Country: AT (occurrence: AT)
  Receive Date: 20201026
  Receipt Date: 20201026
  Transmission Date: 20210114
  Serious: Yes (Other)
  Sender: FDA-Public Use
  Company Number: AT-SHIRE-AT202034299

PATIENT

DRUGS (1)
  1. IDURSULFASE [Suspect]
     Active Substance: IDURSULFASE
     Indication: MUCOPOLYSACCHARIDOSIS II
     Dosage: 48 MILLIGRAM, 1X/WEEK
     Route: 042
     Dates: start: 20201015

REACTIONS (5)
  - Retching [Recovered/Resolved]
  - Dizziness [Unknown]
  - Malaise [Recovered/Resolved]
  - Vertigo [Recovered/Resolved]
  - Nausea [Unknown]

NARRATIVE: CASE EVENT DATE: 20201015
